FAERS Safety Report 14273031 (Version 6)
Quarter: 2018Q1

REPORT INFORMATION
  Report Type: Spontaneous
  Country: ES (occurrence: ES)
  Receive Date: 20171212
  Receipt Date: 20180331
  Transmission Date: 20180508
  Serious: Yes (Disabling, Other)
  Sender: FDA-Public Use
  Company Number: ES-AUROBINDO-AUR-APL-2017-44390

PATIENT
  Age: 49 Year
  Sex: Male

DRUGS (15)
  1. SOFOSBUVIR [Concomitant]
     Active Substance: SOFOSBUVIR
     Indication: HIV INFECTION
  2. ABACAVIR. [Concomitant]
     Active Substance: ABACAVIR
     Dosage: ()
     Route: 065
  3. RALTEGRAVIR. [Concomitant]
     Active Substance: RALTEGRAVIR
     Indication: HIV INFECTION
     Dosage: ()
     Route: 065
  4. RIBAVIRIN CAPSULE [Suspect]
     Active Substance: RIBAVIRIN
     Indication: CHRONIC HEPATITIS C
     Dosage: UNK
     Route: 048
  5. SIMEPREVIR [Suspect]
     Active Substance: SIMEPREVIR
     Indication: HIV INFECTION
     Dosage: UNK
     Route: 065
     Dates: start: 2015, end: 2015
  6. LAMIVUDINE. [Concomitant]
     Active Substance: LAMIVUDINE
     Indication: CHRONIC HEPATITIS C
     Dosage: UNKNOWN
     Route: 065
  7. SIMEPREVIR [Suspect]
     Active Substance: SIMEPREVIR
     Indication: CHRONIC HEPATITIS C
     Dosage: UNKNOWN
     Route: 016
     Dates: start: 20150501
  8. ABACAVIR. [Concomitant]
     Active Substance: ABACAVIR
     Indication: CHRONIC HEPATITIS C
     Dosage: UNKNOWN
     Route: 065
  9. RIBAVIRIN CAPSULE [Suspect]
     Active Substance: RIBAVIRIN
     Indication: HIV INFECTION
     Dosage: UNKNOWN
     Route: 065
     Dates: start: 201505, end: 2015
  10. SOFOSBUVIR [Concomitant]
     Active Substance: SOFOSBUVIR
     Indication: CHRONIC HEPATITIS C
     Dosage: ()
     Route: 065
     Dates: start: 201505
  11. ETRAVIRINE [Concomitant]
     Active Substance: ETRAVIRINE
     Indication: CHRONIC HEPATITIS C
     Dosage: UNKNOWN
     Route: 065
  12. ABACAVIR. [Concomitant]
     Active Substance: ABACAVIR
     Indication: HIV INFECTION
     Dosage: ()
     Route: 065
  13. RALTEGRAVIR. [Concomitant]
     Active Substance: RALTEGRAVIR
     Dosage: ()
     Route: 065
  14. SIMEPREVIR [Suspect]
     Active Substance: SIMEPREVIR
     Dosage: ()
     Route: 065
     Dates: start: 201505
  15. RALTEGRAVIR. [Concomitant]
     Active Substance: RALTEGRAVIR
     Indication: PRODUCT USED FOR UNKNOWN INDICATION
     Dosage: UNK

REACTIONS (4)
  - Visual acuity reduced [Recovered/Resolved]
  - Disease progression [Recovered/Resolved]
  - Choroiditis [Recovered/Resolved]
  - Blindness [Recovering/Resolving]

NARRATIVE: CASE EVENT DATE: 201507
